FAERS Safety Report 8056659-3 (Version None)
Quarter: 2012Q1

REPORT INFORMATION
  Report Type: 
  Country: None (occurrence: None)
  Receive Date: 20120119
  Receipt Date: 20120112
  Transmission Date: 20120608
  Serious: Yes (Other)
  Sender: FDA-Public Use
  Company Number: US-JNJFOC-20111105822

PATIENT
  Sex: Male
  Weight: 97.98 kg

DRUGS (11)
  1. ZYTIGA [Suspect]
     Indication: PROSTATE CANCER METASTATIC
     Route: 048
     Dates: start: 20111101
  2. VERAPAMIL [Concomitant]
     Indication: HYPERTENSION
     Route: 048
     Dates: start: 20030101
  3. LOVASTATIN [Concomitant]
     Indication: BLOOD CHOLESTEROL INCREASED
     Route: 048
     Dates: start: 20030101
  4. BICALUTAMIDE [Concomitant]
     Indication: NEOPLASM MALIGNANT
     Route: 048
     Dates: start: 20080101
  5. NABUMETONE [Concomitant]
     Route: 048
     Dates: start: 20101101
  6. HYDROCODONE BITARTRATE [Concomitant]
     Indication: PAIN
     Route: 048
     Dates: start: 20100101
  7. PREDNISONE [Concomitant]
     Indication: PROSTATE CANCER METASTATIC
     Route: 048
     Dates: start: 20111101
  8. CITALOPRAM [Concomitant]
     Indication: NERVOUSNESS
     Route: 048
     Dates: start: 20080101
  9. OXYCODONE HCL [Concomitant]
     Indication: PAIN
     Route: 048
     Dates: start: 20101101
  10. TRENTAL [Concomitant]
     Indication: CARDIOVASCULAR DISORDER
     Route: 048
     Dates: start: 20030101
  11. XANAX [Concomitant]
     Indication: SLEEP DISORDER THERAPY
     Route: 048
     Dates: start: 20101101

REACTIONS (5)
  - DECREASED APPETITE [None]
  - CYSTITIS [None]
  - FLATULENCE [None]
  - NAUSEA [None]
  - DYSGEUSIA [None]
